FAERS Safety Report 5240552-5 (Version None)
Quarter: 2007Q1

REPORT INFORMATION
  Report Type: 
  Country: None (occurrence: None)
  Receive Date: 20061208
  Receipt Date: 20060420
  Transmission Date: 20070707
  Serious: Yes (Other)
  Sender: FDA-Public Use
  Company Number: 2006UW07071

PATIENT
  Age: 61 Year
  Sex: Female

DRUGS (2)
  1. CRESTOR [Suspect]
     Dates: start: 20060410
  2. CELEBREX [Concomitant]

REACTIONS (2)
  - VISION BLURRED [None]
  - VISUAL DISTURBANCE [None]
